FAERS Safety Report 8560465-0 (Version None)
Quarter: 2012Q3

REPORT INFORMATION
  Report Type: 
  Country: None (occurrence: None)
  Receive Date: 20120802
  Receipt Date: 20120723
  Transmission Date: 20120928
  Serious: Yes (Other)
  Sender: FDA-Public Use
  Company Number: US-009507513-1207USA011087

PATIENT

DRUGS (7)
  1. TAMSULOSIN HYDROCHLORIDE [Suspect]
     Dosage: 7 ANZ, UNK
     Route: 048
  2. LERCANIDIPINE [Suspect]
     Dosage: 14 ANZ, UNK
     Route: 048
  3. METOPROLOL TARTRATE [Suspect]
     Dosage: 7 ANZ, UNK
     Route: 048
  4. AGGRENOX [Suspect]
     Dosage: 14 ANZ, UNK
     Route: 048
  5. OMEPRAZOLE [Suspect]
     Dosage: 14 ANZ, UNK
     Route: 048
  6. ZOCOR [Suspect]
     Dosage: 7 ANZ, UNK
     Route: 048
  7. PENTAERYTHRITOL TETRANITRATE [Suspect]
     Dosage: 14 ANZ, UNK
     Route: 048

REACTIONS (4)
  - DYSPNOEA [None]
  - MEDICATION ERROR [None]
  - ACCIDENTAL EXPOSURE [None]
  - HYPOTENSION [None]
